FAERS Safety Report 7145721-5 (Version None)
Quarter: 2010Q4

REPORT INFORMATION
  Report Type: 
  Country: None (occurrence: None)
  Receive Date: 20101208
  Receipt Date: 20100603
  Transmission Date: 20110411
  Serious: No
  Sender: FDA-Public Use
  Company Number: US-ABBOTT-10P-163-0643392-00

PATIENT
  Sex: Male
  Weight: 136.2 kg

DRUGS (8)
  1. ERYTHROMYCIN ESTOLATE [Suspect]
     Indication: WOUND
     Dates: start: 20100425
  2. METFORMIN [Concomitant]
     Indication: DIABETES MELLITUS
  3. ACTOS [Concomitant]
     Indication: DIABETES MELLITUS
  4. LIPITOR [Concomitant]
     Indication: BLOOD CHOLESTEROL INCREASED
  5. LANTUS [Concomitant]
     Indication: DIABETES MELLITUS
  6. NIASPAN [Concomitant]
     Indication: HYPERLIPIDAEMIA
  7. HUMALOG [Concomitant]
     Indication: DIABETES MELLITUS
  8. UNKNOWN BETA BLOCKERS [Concomitant]
     Indication: CARDIAC FAILURE CONGESTIVE

REACTIONS (1)
  - PRODUCT TASTE ABNORMAL [None]
